FAERS Safety Report 23271606 (Version 1)
Quarter: 2023Q4

REPORT INFORMATION
  Report Type: Spontaneous
  Country: CZ (occurrence: CZ)
  Receive Date: 20231207
  Receipt Date: 20231207
  Transmission Date: 20240109
  Serious: Yes (Other)
  Sender: FDA-Public Use
  Company Number: CZ-GILEAD-2023-0652956

PATIENT
  Age: 48 Year
  Sex: Male

DRUGS (1)
  1. YESCARTA [Suspect]
     Active Substance: AXICABTAGENE CILOLEUCEL
     Indication: Primary mediastinal large B-cell lymphoma
     Dosage: UNK
     Route: 042
     Dates: start: 20191202, end: 20191202

REACTIONS (10)
  - Anal abscess [Unknown]
  - Respiratory tract infection bacterial [Unknown]
  - B-cell aplasia [Unknown]
  - Hypogammaglobulinaemia [Unknown]
  - Cytokine release syndrome [Unknown]
  - Infection [Unknown]
  - Lung disorder [Unknown]
  - Herpes zoster [Unknown]
  - Bacterial infection [Unknown]
  - Viral infection [Unknown]
